FAERS Safety Report 4637480-2 (Version None)
Quarter: 2005Q2

REPORT INFORMATION
  Report Type: 
  Country: None (occurrence: None)
  Receive Date: 20050328
  Receipt Date: 20050214
  Transmission Date: 20051028
  Serious: No
  Sender: FDA-Public Use
  Company Number: USA040259402

PATIENT
  Age: 68 Year
  Sex: Female
  Weight: 68 kg

DRUGS (9)
  1. STRATTERA [Suspect]
     Indication: ATTENTION DEFICIT/HYPERACTIVITY DISORDER
     Dosage: 40 MG/2 DAY
     Dates: start: 20040211
  2. PROZAC [Suspect]
     Dates: start: 20000101
  3. PREMARIN [Concomitant]
  4. CALCIUM GLUCONATE [Concomitant]
  5. FOLIC ACID [Concomitant]
  6. VITAMIN E [Concomitant]
  7. FISH OIL [Concomitant]
  8. ASPIRIN [Concomitant]
  9. LESCOL [Concomitant]

REACTIONS (12)
  - ABNORMAL DREAMS [None]
  - CONSTIPATION [None]
  - DRUG EFFECT DECREASED [None]
  - DRUG INEFFECTIVE [None]
  - FATIGUE [None]
  - HYPERHIDROSIS [None]
  - MEMORY IMPAIRMENT [None]
  - NAUSEA [None]
  - SLEEP DISORDER [None]
  - SNEEZING [None]
  - STOMACH DISCOMFORT [None]
  - VOMITING [None]
